FAERS Safety Report 5759016-5 (Version None)
Quarter: 2008Q2

REPORT INFORMATION
  Report Type: 
  Country: None (occurrence: None)
  Receive Date: 20080604
  Receipt Date: 20080523
  Transmission Date: 20081010
  Serious: Yes (Life-Threatening, Hospitalization)
  Sender: FDA-Public Use
  Company Number: GB-PFIZER INC-2007080111

PATIENT
  Age: 77 Year
  Sex: Male

DRUGS (9)
  1. CHANTIX [Suspect]
     Indication: SMOKING CESSATION THERAPY
     Route: 048
     Dates: start: 20070622, end: 20070705
  2. ASPIRIN [Concomitant]
     Indication: ATRIAL FIBRILLATION
     Dosage: DAILY DOSE:75MG
     Route: 048
  3. ATORVASTATIN [Concomitant]
     Dosage: DAILY DOSE:40MG
     Route: 048
  4. ESOMEPRAZOLE [Concomitant]
     Dosage: DAILY DOSE:20MG
     Route: 048
  5. FERROUS SULFATE TAB [Concomitant]
     Indication: CORONARY ARTERY BYPASS
     Route: 048
  6. GLICLAZIDE [Concomitant]
     Route: 048
  7. RAMIPRIL [Concomitant]
     Dosage: DAILY DOSE:5MG
     Route: 048
  8. SILDENAFIL CITRATE [Concomitant]
     Route: 048
  9. SOTALOL HCL [Concomitant]
     Indication: ANGINA PECTORIS
     Dosage: DAILY DOSE:40MG
     Route: 048

REACTIONS (5)
  - ARRHYTHMIA [None]
  - ATRIAL FIBRILLATION [None]
  - CHEST DISCOMFORT [None]
  - GASTROINTESTINAL DISORDER [None]
  - PALPITATIONS [None]
